FAERS Safety Report 11029588 (Version 2)
Quarter: 2015Q2

REPORT INFORMATION
  Report Type: Report from Study
  Country: US (occurrence: None)
  Receive Date: 20150413
  Receipt Date: 20150416
  Transmission Date: 20150821
  Serious: Yes (Other)
  Sender: FDA-Public Use
  Company Number: KAD201504-000792

PATIENT
  Age: 36 Year
  Sex: Female

DRUGS (5)
  1. SULFAMETHOXAZOLE (SULFAMETHOXAZOLE) [Concomitant]
     Indication: HEPATITIS C
  2. RIBAVIRIN. [Suspect]
     Active Substance: RIBAVIRIN
     Indication: HEPATITIS C
     Dosage: DIVIDED DOSE DAILY; 1000 MG DAILY, ORAL
     Route: 048
     Dates: start: 20141022, end: 20150114
  3. ABT-493 [Suspect]
     Active Substance: INVESTIGATIONAL PRODUCT
     Indication: HEPATITIS C
     Dates: start: 20141022, end: 20150114
  4. GLYBURIDE (GLIBENCLAMIDE) [Concomitant]
     Active Substance: GLYBURIDE
  5. ABT-530 [Suspect]
     Active Substance: INVESTIGATIONAL PRODUCT
     Indication: HEPATITIS C
     Route: 048
     Dates: start: 20141022, end: 20150114

REACTIONS (6)
  - Maternal exposure during pregnancy [None]
  - Nausea [None]
  - Abortion spontaneous [None]
  - Pregnancy with contraceptive device [None]
  - Subcutaneous abscess [None]
  - Pregnancy with injectable contraceptive [None]

NARRATIVE: CASE EVENT DATE: 20150325
